FAERS Safety Report 6522027-6 (Version None)
Quarter: 2009Q4

REPORT INFORMATION
  Report Type: 
  Country: None (occurrence: None)
  Receive Date: 20091230
  Receipt Date: 20091228
  Transmission Date: 20100525
  Serious: Yes (Hospitalization)
  Sender: FDA-Public Use
  Company Number: NL-ROCHE-676912

PATIENT
  Sex: Female

DRUGS (5)
  1. BEVACIZUMAB [Suspect]
     Dosage: LAST DATE OF ADMINISTRATION: 11 DEC 2009.
     Route: 042
     Dates: start: 20091211
  2. TRASTUZUMAB [Suspect]
     Dosage: LAST DATE OF ADMINISTRATION: 10 DEC 2009.
     Route: 042
     Dates: start: 20091210
  3. TAXOL [Suspect]
     Dosage: LAST DATE OF ADMINISTRATION: 11 DEC 2009.
     Route: 042
     Dates: start: 20091211
  4. TRAMADOL HCL [Concomitant]
  5. METOCLOPRAMIDE [Concomitant]

REACTIONS (4)
  - C-REACTIVE PROTEIN INCREASED [None]
  - HAEMOGLOBIN DECREASED [None]
  - PYREXIA [None]
  - WHITE BLOOD CELL COUNT DECREASED [None]
